FAERS Safety Report 4901619-1 (Version None)
Quarter: 2006Q1

REPORT INFORMATION
  Report Type: 
  Country: None (occurrence: None)
  Receive Date: 20060206
  Receipt Date: 20010401
  Transmission Date: 20060701
  Serious: Yes (Other)
  Sender: FDA-Public Use
  Company Number: US-BRISTOL-MYERS SQUIBB COMPANY-13033071

PATIENT

DRUGS (2)
  1. TAXOL [Suspect]
  2. BENADRYL [Suspect]
     Indication: PREMEDICATION

REACTIONS (1)
  - CONVULSION [None]
